FAERS Safety Report 9869772 (Version 2)
Quarter: 2014Q2

REPORT INFORMATION
  Report Type: Report from Study
  Country: CN (occurrence: CN)
  Receive Date: 20140205
  Receipt Date: 20140424
  Transmission Date: 20141212
  Serious: Yes (Other)
  Sender: FDA-Public Use
  Company Number: CN-ASTELLAS-2014US001105

PATIENT
  Sex: 0

DRUGS (2)
  1. ERLOTINIB [Suspect]
     Indication: NON-SMALL CELL LUNG CANCER
     Route: 065
  2. ERLOTINIB [Suspect]
     Route: 065

REACTIONS (1)
  - Haemoptysis [Recovered/Resolved]
